FAERS Safety Report 9009354 (Version 1)
Quarter: 2013Q1

REPORT INFORMATION
  Report Type: Spontaneous
  Country: US (occurrence: US)
  Receive Date: 20130111
  Receipt Date: 20130111
  Transmission Date: 20140127
  Serious: No
  Sender: FDA-Public Use
  Company Number: US-PFIZER INC-2013013108

PATIENT
  Sex: Female

DRUGS (6)
  1. GEODON [Suspect]
     Dosage: 40 MG, DAILY
  2. GEODON [Suspect]
     Dosage: 20 MG, DAILY
  3. ZOLOFT [Concomitant]
     Dosage: UNK
  4. LAMICTAL [Concomitant]
     Dosage: UNK
  5. DESYREL [Concomitant]
     Dosage: UNK
  6. KLONOPIN [Concomitant]
     Dosage: UNK

REACTIONS (1)
  - Feeling abnormal [Unknown]
